FAERS Safety Report 12519131 (Version 1)
Quarter: 2016Q2

REPORT INFORMATION
  Report Type: Report from Study
  Country: CA (occurrence: CA)
  Receive Date: 20160630
  Receipt Date: 20160630
  Transmission Date: 20160815
  Serious: Yes (Other)
  Sender: FDA-Public Use
  Company Number: CA-WARNER CHILCOTT, LLC-1054438

PATIENT
  Age: 32 Year
  Sex: Female
  Weight: 74.18 kg

DRUGS (3)
  1. REMICADE [Suspect]
     Active Substance: INFLIXIMAB
     Route: 042
  2. ASACOL HD [Suspect]
     Active Substance: MESALAMINE
  3. IMURAN [Suspect]
     Active Substance: AZATHIOPRINE
     Route: 048

REACTIONS (3)
  - Abortion spontaneous [Recovered/Resolved]
  - Nasopharyngitis [Recovered/Resolved]
  - Exposure during pregnancy [Recovered/Resolved]
